FAERS Safety Report 21202329 (Version 1)
Quarter: 2022Q3

REPORT INFORMATION
  Report Type: Report from Study
  Country: DE (occurrence: DE)
  Receive Date: 20220811
  Receipt Date: 20220811
  Transmission Date: 20221027
  Serious: Yes (Other)
  Sender: FDA-Public Use
  Company Number: DE-ABBVIE-22K-062-4498750-00

PATIENT
  Age: 70 Year
  Sex: Female

DRUGS (4)
  1. RINVOQ [Suspect]
     Active Substance: UPADACITINIB
     Indication: Ankylosing spondylitis
     Route: 048
     Dates: start: 20210524
  2. CORTISONE [Suspect]
     Active Substance: CORTISONE
     Indication: Product used for unknown indication
     Route: 065
  3. CORTISONE [Suspect]
     Active Substance: CORTISONE
     Route: 065
  4. PREDNISOLONE [Concomitant]
     Active Substance: PREDNISOLONE
     Indication: Ankylosing spondylitis
     Route: 048

REACTIONS (3)
  - Pelvic fracture [Recovering/Resolving]
  - Spinal fusion surgery [Recovering/Resolving]
  - Osteopenia [Unknown]

NARRATIVE: CASE EVENT DATE: 20211111
